FAERS Safety Report 13836482 (Version 1)
Quarter: 2017Q3

REPORT INFORMATION
  Report Type: Report from Study
  Country: None (occurrence: BE)
  Receive Date: 20170804
  Receipt Date: 20170804
  Transmission Date: 20171127
  Serious: Yes (Death)
  Sender: FDA-Public Use
  Company Number: BE-ABBVIE-17P-013-2057484-00

PATIENT
  Age: 55 Year
  Sex: Male
  Weight: 66 kg

DRUGS (1)
  1. VENCLYXTO [Suspect]
     Active Substance: VENETOCLAX
     Indication: PLASMA CELL MYELOMA
     Route: 048
     Dates: start: 20170727, end: 20170727

REACTIONS (9)
  - Gastroenteritis Escherichia coli [Fatal]
  - Disease progression [Fatal]
  - Streptococcal infection [Fatal]
  - Asthenia [Fatal]
  - Chills [Fatal]
  - Pseudomonas infection [Fatal]
  - Sepsis [Fatal]
  - Staphylococcal infection [Fatal]
  - Confusional state [Fatal]

NARRATIVE: CASE EVENT DATE: 20170727
